FAERS Safety Report 6097570-7 (Version None)
Quarter: 2009Q1

REPORT INFORMATION
  Report Type: 
  Country: None (occurrence: None)
  Receive Date: 20090227
  Receipt Date: 20081121
  Transmission Date: 20090719
  Serious: No
  Sender: FDA-Public Use
  Company Number: A0757639A

PATIENT
  Age: 26 Year
  Sex: Male

DRUGS (5)
  1. IMITREX [Suspect]
     Indication: NAUSEA
     Dosage: 6MG PER DAY
     Route: 042
     Dates: start: 20081120
  2. TYLENOL [Concomitant]
  3. MOTRIN [Concomitant]
  4. ALBUTEROL [Concomitant]
  5. EXCEDRIN (MIGRAINE) [Concomitant]

REACTIONS (1)
  - INCORRECT ROUTE OF DRUG ADMINISTRATION [None]
